FAERS Safety Report 12271477 (Version 3)
Quarter: 2017Q1

REPORT INFORMATION
  Report Type: Spontaneous
  Country: US (occurrence: US)
  Receive Date: 20160415
  Receipt Date: 20170310
  Transmission Date: 20170428
  Serious: Yes (Hospitalization)
  Sender: FDA-Public Use
  Company Number: US-AMGEN-USASP2016046364

PATIENT
  Age: 77 Year
  Sex: Female

DRUGS (2)
  1. ENBREL [Suspect]
     Active Substance: ETANERCEPT
     Indication: RHEUMATOID ARTHRITIS
     Dosage: 50 MG, QWK ON THURSDAYS
     Route: 065
  2. ENBREL [Suspect]
     Active Substance: ETANERCEPT
     Dosage: 50 MG, QWK ON THURSDAYS
     Route: 065

REACTIONS (8)
  - Fear [Unknown]
  - Injection site haemorrhage [Unknown]
  - Injection site pain [Unknown]
  - Sinus disorder [Unknown]
  - Memory impairment [Unknown]
  - Injection site extravasation [Unknown]
  - Surgery [Unknown]
  - Drug dose omission [Unknown]
